FAERS Safety Report 7704513-6 (Version None)
Quarter: 2011Q3

REPORT INFORMATION
  Report Type: 
  Country: None (occurrence: None)
  Receive Date: 20110823
  Receipt Date: 20110818
  Transmission Date: 20111222
  Serious: Yes (Other)
  Sender: FDA-Public Use
  Company Number: US-PFIZER INC-2010006401

PATIENT
  Sex: Female

DRUGS (2)
  1. CHANTIX [Suspect]
     Indication: SMOKING CESSATION THERAPY
     Dosage: 0.5 MG, UNK
     Dates: start: 20071001, end: 20080601
  2. EFFEXOR [Concomitant]
     Indication: DEPRESSION
     Dosage: UNK
     Dates: start: 19950101, end: 20110101

REACTIONS (5)
  - SUICIDAL IDEATION [None]
  - DEPRESSION SUICIDAL [None]
  - INSOMNIA [None]
  - ANGER [None]
  - ABNORMAL BEHAVIOUR [None]
